FAERS Safety Report 24389119 (Version 1)
Quarter: 2024Q4

REPORT INFORMATION
  Report Type: Report from Study
  Country: CO (occurrence: CO)
  Receive Date: 20241002
  Receipt Date: 20241002
  Transmission Date: 20250115
  Serious: Yes (Hospitalization, Other)
  Sender: ABBVIE
  Company Number: CO-ABBVIE-5943425

PATIENT
  Sex: Male
  Weight: 65 kg

DRUGS (9)
  1. VENCLEXTA [Suspect]
     Active Substance: VENETOCLAX
     Indication: Acute myeloid leukaemia
     Dosage: STOP DATE TEXT: CHANGE DOSE
     Route: 048
     Dates: start: 20240820
  2. VENCLEXTA [Suspect]
     Active Substance: VENETOCLAX
     Indication: Acute myeloid leukaemia
     Route: 048
     Dates: end: 2024
  3. LEVOFLOXACIN [Concomitant]
     Active Substance: LEVOFLOXACIN
     Indication: Product used for unknown indication
     Dosage: - FORM STRENGTH: 50 MILLIGRAM
     Route: 048
     Dates: start: 202409
  4. SUCRALFATE [Concomitant]
     Active Substance: SUCRALFATE
     Indication: Gastrointestinal disorder prophylaxis
     Route: 048
     Dates: start: 202409
  5. ALLOPURINOL [Concomitant]
     Active Substance: ALLOPURINOL
     Indication: Product used for unknown indication
     Dosage: FORM STRENGTH:300 MILLIGRAM
     Route: 048
     Dates: start: 2024
  6. AZACITIDINE [Concomitant]
     Active Substance: AZACITIDINE
     Indication: Product used for unknown indication
     Route: 048
     Dates: start: 202408
  7. PREGABALIN [Concomitant]
     Active Substance: PREGABALIN
     Indication: Intervertebral disc protrusion
     Dosage: - FORM STRENGTH: 50 MILLIGRAM
     Route: 048
     Dates: start: 2024
  8. TAMSULOSIN [Concomitant]
     Active Substance: TAMSULOSIN
     Indication: Cystitis
     Dosage: FORM STRENGTH: 0.4 MG
     Route: 048
     Dates: start: 2024
  9. ACYCLOVIR [Concomitant]
     Active Substance: ACYCLOVIR
     Indication: Product used for unknown indication
     Dosage: FORM STRENGTH: 400 MILLIGRAM
     Route: 048
     Dates: start: 202311

REACTIONS (9)
  - Platelet count decreased [Unknown]
  - Dyspnoea [Recovering/Resolving]
  - Vomiting [Recovered/Resolved]
  - Anorectal discomfort [Not Recovered/Not Resolved]
  - Sitting disability [Not Recovered/Not Resolved]
  - Haemorrhoids [Recovering/Resolving]
  - Petechiae [Recovering/Resolving]
  - Haemoglobin decreased [Unknown]
  - Proctitis [Recovered/Resolved]

NARRATIVE: CASE EVENT DATE: 20240101
